FAERS Safety Report 5801478-9 (Version None)
Quarter: 2008Q3

REPORT INFORMATION
  Report Type: 
  Country: None (occurrence: None)
  Receive Date: 20080703
  Receipt Date: 20080703
  Transmission Date: 20090109
  Serious: Yes (Hospitalization)
  Sender: FDA-Public Use
  Company Number: None

PATIENT
  Age: 89 Year
  Sex: Female
  Weight: 100 kg

DRUGS (1)
  1. PHENYTOIN [Suspect]
     Indication: CONVULSION
     Dosage: 200 MG BID PO
     Route: 048

REACTIONS (10)
  - ANKLE FRACTURE [None]
  - ASTHENIA [None]
  - DYSPHAGIA [None]
  - HYPOPHAGIA [None]
  - LETHARGY [None]
  - LUNG INFILTRATION [None]
  - MENTAL STATUS CHANGES [None]
  - NAUSEA [None]
  - THERAPEUTIC AGENT TOXICITY [None]
  - UROSEPSIS [None]
